FAERS Safety Report 9263363 (Version 1)
Quarter: 2013Q2

REPORT INFORMATION
  Report Type: Spontaneous
  Country: US (occurrence: US)
  Receive Date: 20130430
  Receipt Date: 20130430
  Transmission Date: 20140414
  Serious: No
  Sender: FDA-Public Use
  Company Number: US-ABBOTT-12P-163-0991398-00

PATIENT
  Age: 66 Year
  Sex: Female
  Weight: 75.82 kg

DRUGS (2)
  1. CREON [Suspect]
     Indication: PANCREATIC INSUFFICIENCY
     Dosage: CREON 24.TWO CAPSULES WITH MEALS AND ONE CAPSULE WITH SNACKS.
     Dates: start: 201209
  2. UNKNOWN PAIN MEDICATION [Concomitant]
     Indication: PAIN

REACTIONS (2)
  - Abdominal pain [Not Recovered/Not Resolved]
  - Abdominal discomfort [Not Recovered/Not Resolved]
